FAERS Safety Report 22733879 (Version 4)
Quarter: 2023Q4

REPORT INFORMATION
  Report Type: Report from Study
  Country: US (occurrence: US)
  Receive Date: 20230721
  Receipt Date: 20231221
  Transmission Date: 20240109
  Serious: Yes (Hospitalization, Other)
  Sender: FDA-Public Use
  Company Number: US-ABBVIE-5334154

PATIENT
  Sex: Female
  Weight: 44.452 kg

DRUGS (4)
  1. HUMIRA [Suspect]
     Active Substance: ADALIMUMAB
     Indication: Crohn^s disease
     Dosage: FORM STRENGTH WAS 40 MILLIGRAM.
     Route: 058
     Dates: start: 20230629, end: 20230726
  2. HUMIRA [Suspect]
     Active Substance: ADALIMUMAB
     Dosage: FORM STRENGTH: 40 MG
     Route: 058
  3. MERCAPTOPURINE [Concomitant]
     Active Substance: MERCAPTOPURINE
     Indication: Product used for unknown indication
     Route: 065
     Dates: start: 20130327
  4. LOSARTAN [Concomitant]
     Active Substance: LOSARTAN
     Indication: Hypertension
     Dates: start: 2005, end: 202311

REACTIONS (11)
  - Gastrointestinal pain [Recovered/Resolved]
  - Gingival pain [Unknown]
  - Mastication disorder [Recovering/Resolving]
  - Lip and/or oral cavity cancer [Recovering/Resolving]
  - Osteonecrosis of jaw [Recovered/Resolved]
  - Dysphagia [Recovered/Resolved]
  - Osteonecrosis of jaw [Recovering/Resolving]
  - Pharyngeal cancer metastatic [Recovering/Resolving]
  - Pain in jaw [Recovering/Resolving]
  - Musculoskeletal disorder [Recovered/Resolved]
  - Speech disorder [Recovering/Resolving]

NARRATIVE: CASE EVENT DATE: 20200101
